FAERS Safety Report 15221334 (Version 1)
Quarter: 2018Q3

REPORT INFORMATION
  Report Type: Report from Study
  Country: DE (occurrence: DE)
  Receive Date: 20180731
  Receipt Date: 20180731
  Transmission Date: 20181010
  Serious: Yes (Hospitalization, Other)
  Sender: FDA-Public Use
  Company Number: DE-MYLANLABS-2017M1082319

PATIENT
  Age: 62 Year
  Sex: Male
  Weight: 70 kg

DRUGS (34)
  1. AVASTIN [Suspect]
     Active Substance: BEVACIZUMAB
     Dosage: 350 MG, Q2W
     Route: 042
     Dates: start: 20161024
  2. AVASTIN [Suspect]
     Active Substance: BEVACIZUMAB
     Dosage: 700 MG, QW
     Route: 042
     Dates: start: 20161024
  3. 5?FLUOROURACIL                     /00098801/ [Suspect]
     Active Substance: FLUOROURACIL
     Dosage: 724 MG, 2X A WEEK (4344?5792 MG)
     Route: 040
     Dates: start: 20160829
  4. PEGFILGRASTIM [Suspect]
     Active Substance: PEGFILGRASTIM
     Indication: NEUTROPENIA
     Dosage: 6 MG, 14 DAY
     Route: 042
     Dates: start: 20151228
  5. BEVACIZUMAB. [Concomitant]
     Active Substance: BEVACIZUMAB
     Indication: COLORECTAL CANCER METASTATIC
     Dosage: UNK
  6. OXALIPLATIN. [Suspect]
     Active Substance: OXALIPLATIN
     Dosage: 123.76 MG, Q2W
     Route: 042
     Dates: start: 20160509, end: 20160815
  7. OXALIPLATIN. [Suspect]
     Active Substance: OXALIPLATIN
     Dosage: 123.76 MG, UNK
     Route: 042
  8. AVASTIN [Suspect]
     Active Substance: BEVACIZUMAB
     Dosage: 355 MG, Q2W
     Route: 042
     Dates: start: 20160404, end: 20161024
  9. PANTOPRAZOL [Concomitant]
     Active Substance: PANTOPRAZOLE SODIUM
     Indication: PRODUCT USED FOR UNKNOWN INDICATION
     Dosage: 40 MG, QD
     Route: 048
     Dates: start: 20160619
  10. 5?FLUOROURACIL                     /00098801/ [Suspect]
     Active Substance: FLUOROURACIL
     Indication: COLORECTAL CANCER
     Dosage: 724 MG, Q2W
     Route: 040
     Dates: start: 20160829, end: 20161107
  11. 5?FLUOROURACIL                     /00098801/ [Suspect]
     Active Substance: FLUOROURACIL
     Dosage: 1 DF, Q2W
     Route: 040
     Dates: start: 20151228, end: 20160511
  12. FOLINIC ACID [Suspect]
     Active Substance: LEUCOVORIN
     Dosage: 362?364 MG
     Route: 042
     Dates: start: 20151228, end: 20161107
  13. ONDANSETRON [Concomitant]
     Active Substance: ONDANSETRON
     Dosage: 6 MG, QD
     Route: 042
     Dates: start: 20151228
  14. DEXAMETHASON [Concomitant]
     Active Substance: DEXAMETHASONE
     Dosage: UNK
  15. OXALIPLATIN. [Suspect]
     Active Substance: OXALIPLATIN
     Dosage: 153.85 MG, 2X A WEEK
     Route: 042
     Dates: start: 20151228
  16. AVASTIN [Suspect]
     Active Substance: BEVACIZUMAB
     Dosage: 700 MG, QW
     Route: 042
     Dates: start: 20151228
  17. ONDANSETRON [Concomitant]
     Active Substance: ONDANSETRON
     Dosage: UNK
  18. PANTOPRAZOL [Concomitant]
     Active Substance: PANTOPRAZOLE SODIUM
     Dosage: UNK
  19. IRINOTECAN [Suspect]
     Active Substance: IRINOTECAN
     Dosage: 326 MG, Q2W
     Route: 042
     Dates: start: 20161107
  20. OXALIPLATIN. [Suspect]
     Active Substance: OXALIPLATIN
     Indication: COLORECTAL CANCER
     Dosage: 153.85 MG, Q2W
     Route: 042
     Dates: start: 20151228, end: 20160509
  21. 5?FLUOROURACIL                     /00098801/ [Suspect]
     Active Substance: FLUOROURACIL
     Dosage: 64 DF, QW
     Route: 040
     Dates: start: 20151228, end: 20160511
  22. 5?FLUOROURACIL                     /00098801/ [Suspect]
     Active Substance: FLUOROURACIL
     Dosage: 1 DF, UNK
     Route: 040
  23. OXALIPLATIN. [Suspect]
     Active Substance: OXALIPLATIN
     Dosage: 122 UNK, UNK
     Route: 042
     Dates: start: 20160815
  24. OXALIPLATIN. [Suspect]
     Active Substance: OXALIPLATIN
     Dosage: DOSE 123.76 OR 122 MG
     Dates: start: 20160815
  25. BISOPROLOL [Concomitant]
     Active Substance: BISOPROLOL
     Indication: HYPERTENSION
     Dosage: 5 MG, QD
     Route: 048
  26. IRINOTECAN [Suspect]
     Active Substance: IRINOTECAN
     Indication: COLORECTAL CANCER METASTATIC
     Dosage: 298.65 MG, Q2W
     Route: 042
     Dates: start: 20151228, end: 20161107
  27. OXALIPLATIN. [Suspect]
     Active Substance: OXALIPLATIN
     Dosage: 122 MG, Q2W
     Route: 042
     Dates: start: 20160509, end: 20160815
  28. AVASTIN [Suspect]
     Active Substance: BEVACIZUMAB
     Indication: COLORECTAL CANCER METASTATIC
     Dosage: 350 MG, Q2W
     Route: 042
     Dates: start: 20151228
  29. AVASTIN [Suspect]
     Active Substance: BEVACIZUMAB
     Dosage: 355 MG, UNK
     Route: 042
  30. 5?FLUOROURACIL                     /00098801/ [Suspect]
     Active Substance: FLUOROURACIL
     Dosage: (DOSE RANGE 4344?5792 MG)
     Route: 040
     Dates: start: 20151228, end: 20160511
  31. FOLINIC ACID [Suspect]
     Active Substance: LEUCOVORIN
     Indication: COLORECTAL CANCER
     Dosage: 1 DF, Q2W
     Route: 042
     Dates: start: 20151228, end: 20161107
  32. BISOPROLOL [Concomitant]
     Active Substance: BISOPROLOL
     Dosage: UNK
  33. ONDANSETRON [Concomitant]
     Active Substance: ONDANSETRON
     Indication: NAUSEA
     Dosage: 8 MG, QD
     Route: 042
     Dates: start: 20151228
  34. DEXAMETHASON [Concomitant]
     Active Substance: DEXAMETHASONE
     Indication: NAUSEA
     Dosage: 8 MG, UNK BEFORE CHEMOTHERAPY
     Route: 042

REACTIONS (3)
  - Off label use [Unknown]
  - Liver abscess [Recovered/Resolved]
  - Perihepatic abscess [Recovered/Resolved]

NARRATIVE: CASE EVENT DATE: 20160622
